FAERS Safety Report 7035866-2 (Version None)
Quarter: 2010Q4

REPORT INFORMATION
  Report Type: 
  Country: None (occurrence: None)
  Receive Date: 20101008
  Receipt Date: 20100929
  Transmission Date: 20110411
  Serious: Yes (Life-Threatening)
  Sender: FDA-Public Use
  Company Number: GXKR2010CA11042

PATIENT
  Age: 5 Year
  Sex: Male
  Weight: 21 kg

DRUGS (9)
  1. CODEINE SULFATE [Suspect]
     Dosage: 30 MG, UNK
     Route: 042
  2. SEVOFLURANE [Concomitant]
     Indication: ANAESTHESIA
  3. ATROPINE [Concomitant]
     Dosage: 5 ?G/KG
  4. FENTANYL [Concomitant]
     Dosage: 1 ?G/KG
  5. PROPOFOL [Concomitant]
     Dosage: 2.5 MG/KG
  6. DEXAMETHASONE [Concomitant]
     Dosage: 0.2 MG/KG
  7. ONDANSETRON [Concomitant]
     Dosage: 0.1 MG/KG
  8. EPINEPHRINE [Concomitant]
     Dosage: 0.05 ?G/KG/MIN
  9. ACETAMINOPHEN [Concomitant]
     Dosage: 40 MG/KG

REACTIONS (9)
  - ANAPHYLACTIC REACTION [None]
  - COUGH [None]
  - DRUG ADMINISTRATION ERROR [None]
  - ENDOTRACHEAL INTUBATION [None]
  - FLUSHING [None]
  - HYPOCALCAEMIA [None]
  - INJECTION SITE URTICARIA [None]
  - MECHANICAL VENTILATION [None]
  - UNRESPONSIVE TO STIMULI [None]
